FAERS Safety Report 8501457-7 (Version None)
Quarter: 2012Q3

REPORT INFORMATION
  Report Type: 
  Country: None (occurrence: None)
  Receive Date: 20120710
  Receipt Date: 20120704
  Transmission Date: 20120928
  Serious: Yes (Other)
  Sender: FDA-Public Use
  Company Number: DK-JNJFOC-20120701796

PATIENT
  Age: 38 Year
  Sex: Male

DRUGS (3)
  1. NICORETTE [Suspect]
     Indication: SMOKING CESSATION THERAPY
     Dosage: 2 MG GUM, 3-4 GUMS A DAY
     Route: 048
     Dates: start: 20090601
  2. NICORETTE [Suspect]
     Dosage: 2 MG GUM, ABOUT 30 GUMS A DAY
     Route: 048
     Dates: start: 20090901
  3. NICORETTE [Suspect]
     Route: 048

REACTIONS (3)
  - NICOTINE DEPENDENCE [None]
  - OVERDOSE [None]
  - INCORRECT DRUG ADMINISTRATION DURATION [None]
